FAERS Safety Report 8524970-5 (Version None)
Quarter: 2012Q3

REPORT INFORMATION
  Report Type: 
  Country: None (occurrence: None)
  Receive Date: 20120720
  Receipt Date: 20120718
  Transmission Date: 20120928
  Serious: Yes (Other)
  Sender: FDA-Public Use
  Company Number: CA-JNJFOC-20120301424

PATIENT
  Sex: Female

DRUGS (6)
  1. SIMPONI [Suspect]
     Indication: RHEUMATOID ARTHRITIS
     Route: 058
     Dates: start: 20111220, end: 20120229
  2. AVALIDE [Concomitant]
  3. CALCIUM AND VITAMIN D [Concomitant]
  4. METHOTREXATE [Concomitant]
  5. LANSOPRAZOLE [Concomitant]
  6. NAPROSYN CR [Concomitant]

REACTIONS (1)
  - PNEUMONIA [None]
